FAERS Safety Report 23621387 (Version 1)
Quarter: 2024Q1

REPORT INFORMATION
  Report Type: Other
  Country: TR (occurrence: TR)
  Receive Date: 20240312
  Receipt Date: 20240312
  Transmission Date: 20240410
  Serious: Yes (Disabling)
  Sender: FDA-Public Use
  Company Number: TR-Misemer Pharmaceutical, Inc.-2154267

PATIENT
  Age: 27 Year
  Sex: Male

DRUGS (1)
  1. KETOPROFEN [Suspect]
     Active Substance: KETOPROFEN
     Route: 042

REACTIONS (2)
  - Skin ulcer [Recovered/Resolved]
  - Drug abuser [Recovered/Resolved]
